FAERS Safety Report 6919927-1 (Version None)
Quarter: 2010Q3

REPORT INFORMATION
  Report Type: 
  Country: None (occurrence: None)
  Receive Date: 20100811
  Receipt Date: 20100729
  Transmission Date: 20110219
  Serious: Yes (Hospitalization, Other)
  Sender: FDA-Public Use
  Company Number: PHHY2010US50620

PATIENT
  Sex: Female
  Weight: 73.016 kg

DRUGS (16)
  1. EXELON [Suspect]
     Indication: DEMENTIA ALZHEIMER'S TYPE
     Dosage: 4.6 MG, QD
     Route: 062
     Dates: start: 20100225
  2. EXELON [Suspect]
     Dosage: 9.5 MG, QD
     Route: 062
     Dates: start: 20100401, end: 20100415
  3. LEXAPRO [Concomitant]
     Dosage: 10 MG, QD
     Route: 048
     Dates: start: 20100415
  4. NAMENDA [Concomitant]
     Dosage: 10 MG, QD
     Route: 048
     Dates: start: 20100415
  5. ADRENALIN [Concomitant]
     Dosage: 250/50 BID
     Dates: start: 20100415
  6. ALBUTEROL [Concomitant]
     Dosage: 2 PUFFS
     Dates: start: 20100415
  7. ASPIRIN [Concomitant]
     Dosage: 81 MG
  8. DIOVAN [Concomitant]
     Dosage: 320 MG
  9. LIPITOR [Concomitant]
     Dosage: 40 MG
  10. NITROGLYCERIN [Concomitant]
     Dosage: 0.4 SL
  11. PENTAZOCINE [Concomitant]
     Dosage: 20 MG
  12. SANCTURA [Concomitant]
     Dosage: 40  MG
  13. SINGULAIR [Concomitant]
     Dosage: 10 MGF
  14. ZEPHIROL [Concomitant]
     Dosage: 50 MG
  15. ACETAMINOPHEN [Concomitant]
     Dosage: 650 MG
  16. VITAMIN B-12 [Concomitant]
     Route: 030

REACTIONS (9)
  - ABNORMAL BEHAVIOUR [None]
  - BLOOD PRESSURE DECREASED [None]
  - CONFUSIONAL STATE [None]
  - DEPRESSION [None]
  - DIARRHOEA [None]
  - HAEMOGLOBIN DECREASED [None]
  - HYPERSENSITIVITY [None]
  - HYPOPHAGIA [None]
  - MENTAL STATUS CHANGES [None]
